FAERS Safety Report 23579236 (Version 1)
Quarter: 2024Q1

REPORT INFORMATION
  Report Type: Report from Study
  Country: US (occurrence: US)
  Receive Date: 20240229
  Receipt Date: 20240229
  Transmission Date: 20240410
  Serious: Yes (Other)
  Sender: FDA-Public Use
  Company Number: US-ARGENX-2024-ARGX-US001202

PATIENT

DRUGS (1)
  1. VYVGART [Suspect]
     Active Substance: EFGARTIGIMOD ALFA-FCAB
     Indication: Myasthenia gravis
     Dosage: 10 MG/KG
     Route: 042
     Dates: start: 20230511

REACTIONS (8)
  - Rheumatoid arthritis [Unknown]
  - Cough [Unknown]
  - Asthenia [Unknown]
  - Hot flush [Unknown]
  - Muscle disorder [Unknown]
  - Adverse drug reaction [Unknown]
  - Fatigue [Unknown]
  - Therapeutic response shortened [Unknown]
